FAERS Safety Report 9494384 (Version 1)
Quarter: 2013Q3

REPORT INFORMATION
  Report Type: Spontaneous
  Country: US (occurrence: None)
  Receive Date: 20130828
  Receipt Date: 20130828
  Transmission Date: 20140515
  Serious: Yes (Other)
  Sender: FDA-Public Use
  Company Number: JPI-P-034779

PATIENT
  Age: 61 Year
  Sex: Female

DRUGS (5)
  1. XYREM (500 MILLIGRAM/MILLILITERS, SOLUTION) (SODIUM OXYBATE) [Suspect]
     Indication: CATAPLEXY
     Dosage: 4.5GM (2.25 GM, 2 IN 1D), ORAL
     Route: 048
     Dates: start: 20060804
  2. XYREM (500 MILLIGRAM/MILLILITERS, SOLUTION) (SODIUM OXYBATE) [Suspect]
     Indication: SOMNOLENCE
     Dosage: 4.5GM (2.25 GM, 2 IN 1D), ORAL
     Route: 048
     Dates: start: 20060804
  3. LEVOFLOXACIN [Suspect]
     Indication: SINUSITIS
     Dates: start: 2012, end: 2012
  4. MINOCYCLINE [Suspect]
     Indication: POSTOPERATIVE CARE
     Dates: start: 201307
  5. PROVIGIL [Concomitant]

REACTIONS (8)
  - Joint arthroplasty [None]
  - Sinusitis [None]
  - Drug hypersensitivity [None]
  - Pain [None]
  - Nausea [None]
  - Chest pain [None]
  - Hot flush [None]
  - Hypoaesthesia [None]
